FAERS Safety Report 5301653-6 (Version None)
Quarter: 2007Q2

REPORT INFORMATION
  Report Type: 
  Country: None (occurrence: None)
  Receive Date: 20070419
  Receipt Date: 20070409
  Transmission Date: 20071010
  Serious: Yes (Other)
  Sender: FDA-Public Use
  Company Number: PHEH2007US04749

PATIENT
  Age: 70 Year
  Sex: Male
  Weight: 104.31 kg

DRUGS (4)
  1. TEKTURNA [Suspect]
     Dosage: 150 MG, QD
     Route: 048
     Dates: start: 20070405, end: 20070409
  2. LASIX [Concomitant]
     Dosage: 40 MG, QD
  3. CLONIDINE [Concomitant]
     Dosage: 0.2 MG, BID
  4. MICARDIS [Concomitant]
     Dosage: 80 MG, QD

REACTIONS (3)
  - HYPERTENSION [None]
  - OEDEMA [None]
  - PARAESTHESIA [None]
